FAERS Safety Report 19928867 (Version 1)
Quarter: 2021Q4

REPORT INFORMATION
  Report Type: Spontaneous
  Country: CA (occurrence: CA)
  Receive Date: 20211007
  Receipt Date: 20211007
  Transmission Date: 20220303
  Serious: Yes (Other)
  Sender: FDA-Public Use
  Company Number: CA-TEVA-2021-CA-1961771

PATIENT
  Age: 23 Year
  Sex: Female

DRUGS (3)
  1. OXALIPLATIN [Suspect]
     Active Substance: OXALIPLATIN
     Indication: Chemotherapy
     Route: 065
  2. ATIVAN [Concomitant]
     Active Substance: LORAZEPAM
  3. BENADRYL [Concomitant]
     Active Substance: DIPHENHYDRAMINE HYDROCHLORIDE

REACTIONS (3)
  - Flushing [Recovered/Resolved]
  - Muscle twitching [Recovered/Resolved]
  - Retching [Recovered/Resolved]
